APPROVED DRUG PRODUCT: ETOPOSIDE
Active Ingredient: ETOPOSIDE
Strength: 20MG/ML
Dosage Form/Route: INJECTABLE;INJECTION
Application: A074529 | Product #001 | TE Code: AP
Applicant: MEITHEAL PHARMACEUTICALS INC
Approved: Jul 24, 1996 | RLD: No | RS: No | Type: RX